FAERS Safety Report 12783301 (Version 1)
Quarter: 2016Q3

REPORT INFORMATION
  Report Type: Spontaneous
  Country: US (occurrence: US)
  Receive Date: 20160926
  Receipt Date: 20160926
  Transmission Date: 20161109
  Serious: Yes (Death)
  Sender: FDA-Public Use
  Company Number: None

PATIENT
  Age: 66 Year
  Sex: Female

DRUGS (1)
  1. POMALYST [Suspect]
     Active Substance: POMALIDOMIDE
     Indication: PLASMA CELL MYELOMA
     Route: 048
     Dates: start: 20160729, end: 20160913

REACTIONS (11)
  - Klebsiella infection [None]
  - Staphylococcal bacteraemia [None]
  - Muscular weakness [None]
  - Urinary tract infection [None]
  - Diarrhoea [None]
  - Fall [None]
  - Condition aggravated [None]
  - Cerebrovascular accident [None]
  - Pseudomonas aeruginosa meningitis [None]
  - Hydrocephalus [None]
  - Bacteraemia [None]

NARRATIVE: CASE EVENT DATE: 20160919
